FAERS Safety Report 8748614 (Version 3)
Quarter: 2013Q1

REPORT INFORMATION
  Report Type: Spontaneous
  Country: CH (occurrence: CH)
  Receive Date: 20120827
  Receipt Date: 20130315
  Transmission Date: 20140127
  Serious: Yes (Life-Threatening, Hospitalization, Other)
  Sender: FDA-Public Use
  Company Number: CH-TEVA-355162ISR

PATIENT
  Age: 46 Year
  Sex: Female
  Weight: 56 kg

DRUGS (7)
  1. NOPIL FORTE [Suspect]
     Indication: PYELONEPHRITIS
     Dosage: 1920 MILLIGRAM DAILY; 800MG SULFAMETHOXAZOLE/ 160MG TRIMETHOPRIM
     Route: 048
     Dates: start: 20120727, end: 20120730
  2. MEPHADOLOR 500 NEO [Concomitant]
     Route: 048
     Dates: start: 20120724
  3. DOLOCYL [Concomitant]
  4. MINALGIN [Concomitant]
     Dosage: 1500 MILLIGRAM DAILY;
     Route: 065
     Dates: start: 20120726
  5. OMEZOL-MEPHA MT [Concomitant]
     Dosage: 40 MILLIGRAM DAILY;
     Route: 065
     Dates: start: 20120726
  6. ACETALGIN 500 MG [Concomitant]
     Route: 065
     Dates: start: 20120726
  7. PERENTEROL [Concomitant]
     Dosage: 250 MILLIGRAM DAILY;
     Route: 048
     Dates: start: 20120727

REACTIONS (10)
  - Hyponatraemia [Recovered/Resolved]
  - Somnolence [Unknown]
  - Agitation [Unknown]
  - Vomiting [Unknown]
  - Polyuria [Unknown]
  - Tubulointerstitial nephritis [Unknown]
  - Inappropriate antidiuretic hormone secretion [Unknown]
  - Pneumonia aspiration [Unknown]
  - Neurogenic shock [Unknown]
  - Cardiac arrest [Unknown]
